FAERS Safety Report 7231096-X (Version None)
Quarter: 2011Q1

REPORT INFORMATION
  Report Type: 
  Country: None (occurrence: None)
  Receive Date: 20110118
  Receipt Date: 20110112
  Transmission Date: 20110831
  Serious: Yes (Other)
  Sender: FDA-Public Use
  Company Number: IE-ROCHE-753000

PATIENT
  Age: 21 Year
  Sex: Male

DRUGS (2)
  1. ISOTRETINOIN [Suspect]
     Route: 048
     Dates: start: 20100101
  2. ISOTRETINOIN [Suspect]
     Indication: ACNE
     Route: 048
     Dates: start: 20090101

REACTIONS (2)
  - ERECTILE DYSFUNCTION [None]
  - LOSS OF LIBIDO [None]
